FAERS Safety Report 9068650 (Version 1)
Quarter: 2013Q1

REPORT INFORMATION
  Report Type: Spontaneous
  Country: US (occurrence: None)
  Receive Date: 20130122
  Receipt Date: 20130122
  Transmission Date: 20140127
  Serious: Yes (Death, Other)
  Sender: FDA-Public Use
  Company Number: AUR-APL-2013-00730

PATIENT
  Age: 31 Year
  Sex: Male

DRUGS (7)
  1. NAPROXEN (NAPROXEN) [Suspect]
     Indication: PRODUCT USED FOR UNKNOWN INDICATION
  2. AMPHETAMINE (AMPHETAMINE SULFATE) [Suspect]
     Indication: PRODUCT USED FOR UNKNOWN INDICATION
     Route: 048
  3. OXYCODONE (OXYCODONE) [Suspect]
     Indication: PRODUCT USED FOR UNKNOWN INDICATION
  4. ETHANOL [ALCOHOL] [Suspect]
     Indication: PRODUCT USED FOR UNKNOWN INDICATION
  5. LIDOCAINE (LIDOCAINE) [Suspect]
     Indication: PRODUCT USED FOR UNKNOWN INDICATION
  6. MEPROBAMATE (MEPROBAMATE) [Suspect]
     Indication: PRODUCT USED FOR UNKNOWN INDICATION
  7. HYDROXYZINE (HYDROXYZINE) [Suspect]
     Indication: PRODUCT USED FOR UNKNOWN INDICATION

REACTIONS (4)
  - Respiratory arrest [None]
  - Cardiac arrest [None]
  - Drug abuse [None]
  - Toxicity to various agents [None]
